FAERS Safety Report 6253902-8 (Version None)
Quarter: 2009Q3

REPORT INFORMATION
  Report Type: 
  Country: None (occurrence: None)
  Receive Date: 20090701
  Receipt Date: 20090701
  Transmission Date: 20100115
  Serious: Yes (Disabling, Other)
  Sender: FDA-Public Use
  Company Number: None

PATIENT
  Sex: Female
  Weight: 60.782 kg

DRUGS (2)
  1. LEVAQUIN [Suspect]
     Dosage: 750 MG 4 X DAY IV DRIP 10 2 X DAY MOUTH 4 DAYS 5 DAYS TWICE
     Route: 041
  2. LEVAQUIN [Suspect]
     Dosage: 750 MG 4 X DAY IV DRIP 10 2 X DAY MOUTH 4 DAYS 5 DAYS TWICE
     Route: 041

REACTIONS (5)
  - DEFORMITY [None]
  - ERYTHEMA [None]
  - PAIN IN EXTREMITY [None]
  - SKIN EXFOLIATION [None]
  - SKIN ULCER [None]
